FAERS Safety Report 23947017 (Version 1)
Quarter: 2024Q2

REPORT INFORMATION
  Report Type: Report from Study
  Country: TW (occurrence: None)
  Receive Date: 20240606
  Receipt Date: 20240606
  Transmission Date: 20240716
  Serious: Yes (Death)
  Sender: FDA-Public Use
  Company Number: 2024A130217

PATIENT
  Age: 21419 Day
  Sex: Male

DRUGS (1)
  1. IMFINZI [Suspect]
     Active Substance: DURVALUMAB
     Route: 041
     Dates: start: 20240408

REACTIONS (2)
  - Haemoptysis [Fatal]
  - Haematemesis [Fatal]

NARRATIVE: CASE EVENT DATE: 20240602
